FAERS Safety Report 7266385-6 (Version None)
Quarter: 2011Q1

REPORT INFORMATION
  Report Type: 
  Country: None (occurrence: None)
  Receive Date: 20110131
  Receipt Date: 20110118
  Transmission Date: 20110831
  Serious: Yes (Other)
  Sender: FDA-Public Use
  Company Number: US-ACTELION-A-NJ2010-37009

PATIENT

DRUGS (3)
  1. CALCIUM CHANNEL BLOCKERS [Concomitant]
  2. BOSENTAN TABLET 62.5 MG US [Suspect]
     Dosage: 62.5 MG, BID
     Route: 048
     Dates: start: 20091016
  3. BOSENTAN TABLET 62.5 MG US [Suspect]
     Indication: PULMONARY ARTERIAL HYPERTENSION
     Dosage: 125 MG, BID
     Route: 048
     Dates: start: 20091101, end: 20101001

REACTIONS (3)
  - OEDEMA PERIPHERAL [None]
  - PANCYTOPENIA [None]
  - HEADACHE [None]
